FAERS Safety Report 8549065-6 (Version None)
Quarter: 2012Q3

REPORT INFORMATION
  Report Type: 
  Country: None (occurrence: None)
  Receive Date: 20120730
  Receipt Date: 20120724
  Transmission Date: 20120928
  Serious: No
  Sender: FDA-Public Use
  Company Number: US-PFIZER INC-2012178903

PATIENT
  Sex: Female

DRUGS (2)
  1. ADVIL [Suspect]
     Indication: PAIN
  2. ADVIL [Suspect]
     Indication: MIGRAINE
     Dosage: UNK

REACTIONS (1)
  - DRUG EFFECT DECREASED [None]
